FAERS Safety Report 4527667-1 (Version None)
Quarter: 2004Q4

REPORT INFORMATION
  Report Type: 
  Country: None (occurrence: None)
  Receive Date: 20041130
  Receipt Date: 20040827
  Transmission Date: 20050328
  Serious: No
  Sender: FDA-Public Use
  Company Number: WAES 0408USA02084

PATIENT
  Age: 73 Year
  Sex: Female
  Weight: 80.2867 kg

DRUGS (6)
  1. ZETIA [Suspect]
     Indication: DYSLIPIDAEMIA
     Dosage: 10 MG/ HS/ PO
     Route: 048
     Dates: start: 20031119, end: 20031201
  2. ZETIA [Suspect]
     Indication: DYSLIPIDAEMIA
     Dosage: 10 MG/ DAILY/ PO
     Route: 048
     Dates: start: 20040224, end: 20040315
  3. BENICAR [Concomitant]
  4. LASIX [Concomitant]
  5. MICRO-K [Concomitant]
  6. PRAVACHOL [Concomitant]

REACTIONS (5)
  - ASPARTATE AMINOTRANSFERASE INCREASED [None]
  - BLOOD CREATINE PHOSPHOKINASE INCREASED [None]
  - CHEST DISCOMFORT [None]
  - CHEST PAIN [None]
  - OEDEMA PERIPHERAL [None]
